FAERS Safety Report 6666159-0 (Version None)
Quarter: 2010Q2

REPORT INFORMATION
  Report Type: 
  Country: None (occurrence: None)
  Receive Date: 20100402
  Receipt Date: 20100326
  Transmission Date: 20101027
  Serious: Yes (Disabling)
  Sender: FDA-Public Use
  Company Number: JP-MERCK-1003USA03982

PATIENT
  Age: 73 Year
  Sex: Male

DRUGS (4)
  1. HYZAAR [Suspect]
     Indication: HYPERTENSION
     Route: 048
     Dates: start: 20100302, end: 20100309
  2. HYZAAR [Suspect]
     Route: 048
     Dates: start: 20100316
  3. AMLODIPINE BESYLATE [Concomitant]
     Indication: HYPERTENSION
     Route: 048
  4. CANDESARTAN CILEXETIL [Concomitant]
     Indication: HYPERTENSION
     Route: 048
     Dates: end: 20100302

REACTIONS (2)
  - DIABETES MELLITUS [None]
  - HAEMATURIA [None]
